FAERS Safety Report 9922488 (Version 1)
Quarter: 2014Q1

REPORT INFORMATION
  Report Type: Spontaneous
  Country: US (occurrence: None)
  Receive Date: 20140224
  Receipt Date: 20140224
  Transmission Date: 20141002
  Serious: Yes (Other)
  Sender: FDA-Public Use
  Company Number: None

PATIENT
  Age: 34 Year
  Sex: Female
  Weight: 84.37 kg

DRUGS (1)
  1. PREDNISONE 20 MG QUALITEST [Suspect]
     Indication: INTERVERTEBRAL DISC PROTRUSION
     Dosage: 2 PILLS ONCE DAILY
     Route: 048
     Dates: start: 20140221, end: 20140223

REACTIONS (5)
  - Dyspnoea [None]
  - Dizziness [None]
  - Nausea [None]
  - Chest discomfort [None]
  - Heart rate irregular [None]
